FAERS Safety Report 11091215 (Version 1)
Quarter: 2015Q2

REPORT INFORMATION
  Report Type: Spontaneous
  Country: US (occurrence: US)
  Receive Date: 20150505
  Receipt Date: 20150505
  Transmission Date: 20150821
  Serious: No
  Sender: FDA-Public Use
  Company Number: US-BAUSCH-BL-2015-009916

PATIENT
  Age: 4 Year
  Sex: Male

DRUGS (1)
  1. OFLOXACIN OTIC [Suspect]
     Active Substance: OFLOXACIN
     Indication: EYE INFECTION
     Dosage: TWO TIMES
     Route: 047
     Dates: start: 20150314, end: 20150315

REACTIONS (4)
  - Drug prescribing error [Recovered/Resolved]
  - Drug dispensing error [Recovered/Resolved]
  - No adverse event [Recovered/Resolved]
  - Incorrect drug dosage form administered [Recovered/Resolved]

NARRATIVE: CASE EVENT DATE: 20150314
